FAERS Safety Report 12110562 (Version 1)
Quarter: 2016Q1

REPORT INFORMATION
  Report Type: Spontaneous
  Country: US (occurrence: US)
  Receive Date: 20160224
  Receipt Date: 20160224
  Transmission Date: 20160526
  Serious: Yes (Hospitalization)
  Sender: FDA-Public Use
  Company Number: US-BAYER-2016-029836

PATIENT
  Age: 25 Year
  Sex: Female

DRUGS (7)
  1. LIDOCAINE. [Concomitant]
     Active Substance: LIDOCAINE
  2. SODIUM CITRATE. [Concomitant]
     Active Substance: SODIUM CITRATE
  3. EPINEPHRINE. [Concomitant]
     Active Substance: EPINEPHRINE
  4. FAMOTIDINE. [Concomitant]
     Active Substance: FAMOTIDINE
  5. METOCLOPRAMIDE. [Concomitant]
     Active Substance: METOCLOPRAMIDE
  6. ACETYLSALICYLIC ACID({=100 MG) [Suspect]
     Active Substance: ASPIRIN
  7. PHENYLEPHRINE [Concomitant]
     Active Substance: PHENYLEPHRINE\PHENYLEPHRINE HYDROCHLORIDE

REACTIONS (2)
  - Procedural haemorrhage [None]
  - Maternal exposure during pregnancy [None]
